FAERS Safety Report 19674147 (Version 1)
Quarter: 2021Q3

REPORT INFORMATION
  Report Type: Spontaneous
  Country: JP (occurrence: JP)
  Receive Date: 20210809
  Receipt Date: 20210809
  Transmission Date: 20211014
  Serious: Yes (Hospitalization, Other)
  Sender: FDA-Public Use
  Company Number: JP-EPICPHARMA-JP-2021EPCLIT00832

PATIENT
  Age: 47 Year
  Sex: Male
  Weight: 52 kg

DRUGS (7)
  1. CARBAMAZEPINE. [Suspect]
     Active Substance: CARBAMAZEPINE
     Indication: HEMICONVULSION-HEMIPLEGIA-EPILEPSY SYNDROME
     Route: 065
  2. CLONAZEPAM. [Suspect]
     Active Substance: CLONAZEPAM
     Indication: HEMICONVULSION-HEMIPLEGIA-EPILEPSY SYNDROME
     Route: 065
  3. LEVETIRACETAM. [Suspect]
     Active Substance: LEVETIRACETAM
     Indication: HEMICONVULSION-HEMIPLEGIA-EPILEPSY SYNDROME
     Route: 065
  4. CLOBAZAM. [Suspect]
     Active Substance: CLOBAZAM
     Indication: HEMICONVULSION-HEMIPLEGIA-EPILEPSY SYNDROME
     Route: 065
  5. VALPROATE [Suspect]
     Active Substance: VALPROIC ACID
     Indication: HEMICONVULSION-HEMIPLEGIA-EPILEPSY SYNDROME
     Route: 065
  6. ZONISAMIDE. [Suspect]
     Active Substance: ZONISAMIDE
     Indication: HEMICONVULSION-HEMIPLEGIA-EPILEPSY SYNDROME
     Route: 065
  7. PHENYTOIN. [Suspect]
     Active Substance: PHENYTOIN
     Indication: HEMICONVULSION-HEMIPLEGIA-EPILEPSY SYNDROME
     Route: 065

REACTIONS (4)
  - Drug level increased [Unknown]
  - Hypoventilation [Recovered/Resolved]
  - Motor dysfunction [Not Recovered/Not Resolved]
  - Nystagmus [Recovered/Resolved]
